FAERS Safety Report 9952415 (Version 3)
Quarter: 2014Q2

REPORT INFORMATION
  Report Type: Spontaneous
  Country: JP (occurrence: JP)
  Receive Date: 20140304
  Receipt Date: 20140407
  Transmission Date: 20141212
  Serious: Yes (Hospitalization)
  Sender: FDA-Public Use
  Company Number: PHJP2014JP000587

PATIENT
  Sex: 0

DRUGS (1)
  1. TEGRETOL TAB 200MG [Suspect]
     Dosage: 300 MG, (100 MG AND 200 MG) DAILY
     Route: 048

REACTIONS (1)
  - Medication residue present [Unknown]
